FAERS Safety Report 4601705-X (Version None)
Quarter: 2005Q1

REPORT INFORMATION
  Report Type: 
  Country: None (occurrence: None)
  Receive Date: 20050131
  Receipt Date: 20041130
  Transmission Date: 20050727
  Serious: No
  Sender: FDA-Public Use
  Company Number: 200417280US

PATIENT
  Age: 30 Year
  Sex: Female

DRUGS (2)
  1. KETEK [Suspect]
     Indication: ASTHMA
     Dosage: 800 MG QD
  2. KETEK [Suspect]
     Indication: BRONCHITIS
     Dosage: 800 MG QD

REACTIONS (2)
  - TREMOR [None]
  - VISION BLURRED [None]
